FAERS Safety Report 24131652 (Version 1)
Quarter: 2024Q3

REPORT INFORMATION
  Report Type: Spontaneous
  Country: US (occurrence: None)
  Receive Date: 20240723
  Receipt Date: 20240723
  Transmission Date: 20241016
  Serious: Yes (Hospitalization)
  Sender: Public
  Company Number: None

PATIENT
  Age: 84 Year
  Sex: Male

DRUGS (1)
  1. LUPRON DEPOT [Suspect]
     Active Substance: LEUPROLIDE ACETATE
     Indication: Prostate cancer
     Dosage: 45MG  EVERY 6 MONTHS INTO THE MUSCLE?
     Route: 030
     Dates: start: 202401

REACTIONS (3)
  - Arthralgia [None]
  - Fluid retention [None]
  - Renal disorder [None]

NARRATIVE: CASE EVENT DATE: 20240401
